FAERS Safety Report 13976289 (Version 1)
Quarter: 2017Q3

REPORT INFORMATION
  Report Type: Report from Study
  Country: JP (occurrence: JP)
  Receive Date: 20170915
  Receipt Date: 20170915
  Transmission Date: 20171128
  Serious: Yes (Death, Other)
  Sender: FDA-Public Use
  Company Number: JP-SUN PHARMACEUTICAL INDUSTRIES LTD-2017RR-149694

PATIENT
  Age: 38 Year
  Sex: Male

DRUGS (21)
  1. CALCIUM FOLINAT [Suspect]
     Active Substance: LEUCOVORIN CALCIUM
     Dosage: 200 MG/M2, 4TH-LINE
     Route: 065
  2. IRINOTECAN [Suspect]
     Active Substance: IRINOTECAN
     Indication: INTESTINAL ADENOCARCINOMA
     Dosage: 180 MG/M2, 2ND-LINE
     Route: 065
  3. IRINOTECAN [Suspect]
     Active Substance: IRINOTECAN
     Dosage: 180 MG/M2, 4TH-LINE
     Route: 065
  4. 5-FLUOROURACIL [Suspect]
     Active Substance: FLUOROURACIL
     Dosage: 400 MG/M2, 2ND-LINE
     Route: 040
  5. 5-FLUOROURACIL [Suspect]
     Active Substance: FLUOROURACIL
     Dosage: 2400 MG/M2, FOR 46 H, EVERY 2 WEEKS, 2ND-LINE
     Route: 042
  6. 5-FLUOROURACIL [Suspect]
     Active Substance: FLUOROURACIL
     Dosage: 2400 MG/M2, FOR 46 H, EVERY 2 WEEKS, 3RD-LINE
     Route: 042
  7. IRINOTECAN [Suspect]
     Active Substance: IRINOTECAN
     Dosage: 180 MG/M2, 3RD-LINE
     Route: 065
  8. 5-FLUOROURACIL [Suspect]
     Active Substance: FLUOROURACIL
     Dosage: 2400 MG/M2, FOR 46 H, EVERY 2 WEEKS, 1ST-LINE
     Route: 042
  9. CALCIUM FOLINAT [Suspect]
     Active Substance: LEUCOVORIN CALCIUM
     Dosage: 200 MG/M2, 2ND-LINE
     Route: 065
  10. 5-FLUOROURACIL [Suspect]
     Active Substance: FLUOROURACIL
     Dosage: 400 MG/M2, 3RD-LINE
     Route: 040
  11. 5-FLUOROURACIL [Suspect]
     Active Substance: FLUOROURACIL
     Dosage: 2400 MG/M2, FOR 46 H, EVERY 2 WEEKS, 4TH-LINE
     Route: 042
  12. CETUXIMAB. [Suspect]
     Active Substance: CETUXIMAB
     Dosage: 250 MG/M2, 1/WEEK, 1ST-LINE
     Route: 065
  13. CALCIUM FOLINAT [Suspect]
     Active Substance: LEUCOVORIN CALCIUM
     Indication: INTESTINAL ADENOCARCINOMA
     Dosage: 200 MG/M2, 1ST-LINE
     Route: 065
  14. 5-FLUOROURACIL [Suspect]
     Active Substance: FLUOROURACIL
     Indication: INTESTINAL ADENOCARCINOMA
     Dosage: 400 MG/M2, 1ST-LINE
     Route: 040
  15. 5-FLUOROURACIL [Suspect]
     Active Substance: FLUOROURACIL
     Dosage: 400 MG/M2, 4TH-LINE
     Route: 040
  16. BEVACIZUMAB. [Suspect]
     Active Substance: BEVACIZUMAB
     Indication: INTESTINAL ADENOCARCINOMA
     Dosage: 3RD-LINE
     Route: 065
  17. CETUXIMAB. [Suspect]
     Active Substance: CETUXIMAB
     Indication: INTESTINAL ADENOCARCINOMA
     Dosage: 400 MG/M2, INITIAL DOSE, 1ST-LINE
     Route: 065
  18. OXALIPLATIN. [Suspect]
     Active Substance: OXALIPLATIN
     Indication: INTESTINAL ADENOCARCINOMA
     Dosage: 85 MG/M2, 1ST-LINE
     Route: 065
  19. CALCIUM FOLINAT [Suspect]
     Active Substance: LEUCOVORIN CALCIUM
     Dosage: 200 MG/M2, 3RD-LINE
     Route: 065
  20. CETUXIMAB. [Suspect]
     Active Substance: CETUXIMAB
     Dosage: 2ND-LINE
     Route: 065
  21. PANITUMUMAB [Suspect]
     Active Substance: PANITUMUMAB
     Indication: INTESTINAL ADENOCARCINOMA
     Dosage: 4TH LINE
     Route: 065

REACTIONS (2)
  - Toxicity to various agents [Unknown]
  - Drug ineffective [Fatal]
